FAERS Safety Report 25627984 (Version 2)
Quarter: 2025Q3

REPORT INFORMATION
  Report Type: Report from Study
  Country: US (occurrence: US)
  Receive Date: 20250731
  Receipt Date: 20250911
  Transmission Date: 20251020
  Serious: No
  Sender: MERCK SHARP & DOHME LLC
  Company Number: US-009507513-2307494

PATIENT
  Age: 56 Year
  Sex: Female
  Weight: 56.699 kg

DRUGS (26)
  1. WINREVAIR [Suspect]
     Active Substance: SOTATERCEPT-CSRK
     Indication: Pulmonary arterial hypertension
     Route: 050
     Dates: start: 202506
  2. WINREVAIR [Suspect]
     Active Substance: SOTATERCEPT-CSRK
  3. WINREVAIR [Suspect]
     Active Substance: SOTATERCEPT-CSRK
  4. WINREVAIR [Suspect]
     Active Substance: SOTATERCEPT-CSRK
  5. TYVASO [Suspect]
     Active Substance: TREPROSTINIL
     Indication: Pulmonary arterial hypertension
     Dosage: CONCENTRATION: 0.6 MG/ML
     Route: 055
     Dates: start: 20240129
  6. TYVASO [Suspect]
     Active Substance: TREPROSTINIL
     Indication: Pulmonary arterial hypertension
     Dosage: 36 UG (6 BREATHS) FOUR TIMES A DAY VIA INHALATION ROUTE, CONCENTRATION: 0.6 MG/ML
     Route: 055
  7. ALBUTEROL\IPRATROPIUM [Concomitant]
     Active Substance: ALBUTEROL\IPRATROPIUM
  8. ADVAIR HFA [Concomitant]
     Active Substance: FLUTICASONE PROPIONATE\SALMETEROL XINAFOATE
  9. OPSUMIT [Concomitant]
     Active Substance: MACITENTAN
  10. ZOCOR [Concomitant]
     Active Substance: SIMVASTATIN
  11. KLOR-CON/EF [Concomitant]
     Active Substance: POTASSIUM BICARBONATE
  12. VITAMIN D2 [Concomitant]
     Active Substance: ERGOCALCIFEROL
  13. NORCO [Concomitant]
     Active Substance: ACETAMINOPHEN\HYDROCODONE BITARTRATE
     Route: 048
  14. RISPERDAL [Concomitant]
     Active Substance: RISPERIDONE
  15. FAMOTIDINE [Concomitant]
     Active Substance: FAMOTIDINE
  16. OXYGEN [Concomitant]
     Active Substance: OXYGEN
  17. SPIRONOLACTONE [Concomitant]
     Active Substance: SPIRONOLACTONE
  18. ASPIRIN [Concomitant]
     Active Substance: ASPIRIN
  19. MONTELUKAST SODIUM [Concomitant]
     Active Substance: MONTELUKAST SODIUM
     Route: 048
  20. KLONOPIN [Concomitant]
     Active Substance: CLONAZEPAM
  21. REMERON [Concomitant]
     Active Substance: MIRTAZAPINE
  22. ONDANSETRON HYDROCHLORIDE [Concomitant]
     Active Substance: ONDANSETRON HYDROCHLORIDE
  23. PRILOSEC [Concomitant]
     Active Substance: OMEPRAZOLE MAGNESIUM
  24. ZYRTEC [Concomitant]
     Active Substance: CETIRIZINE HYDROCHLORIDE
  25. TADALAFIL [Concomitant]
     Active Substance: TADALAFIL
  26. FUROSEMIDE [Concomitant]
     Active Substance: FUROSEMIDE

REACTIONS (8)
  - Palpitations [Unknown]
  - Diarrhoea [Unknown]
  - Product dose omission issue [Unknown]
  - Vomiting [Unknown]
  - Device difficult to use [Unknown]
  - Dizziness [Unknown]
  - Fatigue [Unknown]
  - Headache [Unknown]

NARRATIVE: CASE EVENT DATE: 20250701
